FAERS Safety Report 11732659 (Version 1)
Quarter: 2015Q4

REPORT INFORMATION
  Report Type: Spontaneous
  Country: US (occurrence: US)
  Receive Date: 20151110
  Receipt Date: 20151110
  Transmission Date: 20160304
  Serious: No
  Sender: FDA-Public Use
  Company Number: US-ELI_LILLY_AND_COMPANY-US201204008534

PATIENT
  Sex: Female

DRUGS (1)
  1. FORTEO [Suspect]
     Active Substance: TERIPARATIDE

REACTIONS (6)
  - Headache [Unknown]
  - Hyperhidrosis [Unknown]
  - Gingival recession [Unknown]
  - Pain in jaw [Unknown]
  - Dysphagia [Unknown]
  - Heart rate increased [Unknown]
